FAERS Safety Report 7538043-1 (Version None)
Quarter: 2011Q2

REPORT INFORMATION
  Report Type: 
  Country: None (occurrence: None)
  Receive Date: 20110609
  Receipt Date: 20110603
  Transmission Date: 20111010
  Serious: Yes (Other)
  Sender: FDA-Public Use
  Company Number: DE-AMGEN-DEUSP2011026920

PATIENT
  Age: 78 Year
  Sex: Female

DRUGS (1)
  1. PROLIA [Suspect]
     Indication: OSTEOPOROSIS POSTMENOPAUSAL
     Dosage: UNK
     Route: 058
     Dates: start: 20110323

REACTIONS (6)
  - SKIN DISCOLOURATION [None]
  - ADVERSE DRUG REACTION [None]
  - GINGIVITIS [None]
  - SCIATICA [None]
  - VISUAL IMPAIRMENT [None]
  - EAR PAIN [None]
